FAERS Safety Report 7213141 (Version 3)
Quarter: 2015Q2

REPORT INFORMATION
  Report Type: Report from Study
  Country: IT (occurrence: IT)
  Receive Date: 20091211
  Receipt Date: 20150519
  Transmission Date: 20150821
  Serious: Yes (Other)
  Sender: FDA-Public Use
  Company Number: PHHO2009IT12725

PATIENT
  Age: 46 Year
  Sex: Female

DRUGS (3)
  1. CGS 20267 [Suspect]
     Active Substance: LETROZOLE
     Indication: BREAST CANCER
     Dosage: UNK
     Route: 048
     Dates: start: 20050805, end: 20050828
  2. TRIPTORELIN [Suspect]
     Active Substance: TRIPTORELIN
     Indication: BONE LOSS
     Dosage: UNK
     Route: 065
     Dates: start: 20050805, end: 20050828
  3. ZOLEDRONATE [Suspect]
     Active Substance: ZOLEDRONIC ACID
     Indication: BONE LOSS
     Dosage: UNK
     Route: 042
     Dates: start: 20050805, end: 20050828

REACTIONS (2)
  - Rash macular [Recovered/Resolved]
  - Skin toxicity [Recovered/Resolved]

NARRATIVE: CASE EVENT DATE: 20050828
